FAERS Safety Report 12581328 (Version 1)
Quarter: 2016Q3

REPORT INFORMATION
  Report Type: Spontaneous
  Country: US (occurrence: US)
  Receive Date: 20160721
  Receipt Date: 20160721
  Transmission Date: 20161109
  Serious: Yes (Other)
  Sender: FDA-Public Use
  Company Number: US-ALLERGAN-1663381US

PATIENT
  Age: 52 Year
  Sex: Female

DRUGS (2)
  1. RESTASIS [Suspect]
     Active Substance: CYCLOSPORINE
     Indication: DRY EYE
     Dosage: UNK
     Dates: start: 2015, end: 201602
  2. HUMIRA [Concomitant]
     Active Substance: ADALIMUMAB
     Indication: ANKYLOSING SPONDYLITIS
     Dosage: UNK
     Route: 058
     Dates: start: 2008, end: 2015

REACTIONS (5)
  - Nasal mucosal discolouration [Unknown]
  - Cataract [Unknown]
  - Nasal congestion [Unknown]
  - Seizure [Recovered/Resolved]
  - Paraesthesia oral [Recovered/Resolved]
